FAERS Safety Report 10234835 (Version 1)
Quarter: 2014Q2

REPORT INFORMATION
  Report Type: Spontaneous
  Country: CA (occurrence: CA)
  Receive Date: 20140613
  Receipt Date: 20140613
  Transmission Date: 20141212
  Serious: Yes (Life-Threatening)
  Sender: FDA-Public Use
  Company Number: CA-BEH-2014043003

PATIENT
  Age: 64 Year
  Sex: Male
  Weight: 100.5 kg

DRUGS (5)
  1. PRIVIGEN [Suspect]
     Indication: IMMUNE THROMBOCYTOPENIC PURPURA
     Dosage: STARTED AT 0.5ML/KG/H X 30 MIN, FINISHED AT 200 ML/HOUR
     Route: 042
     Dates: start: 20120330, end: 20120330
  2. PRIVIGEN [Suspect]
     Dosage: STARTED AT 0.5ML/KG/H X 30 MIN, FINISHED AT 200 ML/HOUR
     Route: 042
     Dates: start: 20120331, end: 20120331
  3. PRIVIGEN [Suspect]
     Route: 042
     Dates: start: 20120528, end: 20120531
  4. GAMUNEX [Suspect]
     Indication: IMMUNE THROMBOCYTOPENIC PURPURA
     Dates: start: 20140401, end: 20140401
  5. PREDNISONE [Concomitant]
     Dates: start: 20120330, end: 20120401

REACTIONS (22)
  - Haemolysis [Recovered/Resolved]
  - Chromaturia [Recovered/Resolved]
  - Nausea [Recovered/Resolved]
  - Vomiting [Recovered/Resolved]
  - Anuria [Recovered/Resolved]
  - Blood urine present [Recovered/Resolved]
  - Generalised oedema [Recovered/Resolved]
  - Renal failure [Recovered/Resolved]
  - Hypoproteinaemia [Recovered/Resolved]
  - Malnutrition [Recovered/Resolved]
  - Cholangitis [Recovered/Resolved]
  - Escherichia sepsis [Recovered/Resolved]
  - Splenectomy [Recovered/Resolved]
  - Hypotension [Recovered/Resolved]
  - Melaena [Recovered/Resolved]
  - Procedural haemorrhage [Recovered/Resolved]
  - Enterococcal sepsis [Recovered/Resolved]
  - Coagulopathy [Recovered/Resolved]
  - Muscle haemorrhage [Recovered/Resolved]
  - Shock haemorrhagic [Recovered/Resolved]
  - Gastrointestinal haemorrhage [Recovered/Resolved]
  - Device dislocation [Recovering/Resolving]
